FAERS Safety Report 13036941 (Version 2)
Quarter: 2017Q1

REPORT INFORMATION
  Report Type: Spontaneous
  Country: US (occurrence: US)
  Receive Date: 20161216
  Receipt Date: 20170113
  Transmission Date: 20170428
  Serious: Yes (Other)
  Sender: FDA-Public Use
  Company Number: US-SAOL THERAPEUTICS-2016SAO01180

PATIENT
  Age: 9 Year
  Sex: Male
  Weight: 42.18 kg

DRUGS (20)
  1. LIORESAL [Concomitant]
     Active Substance: BACLOFEN
     Dosage: 10 MG, 3X/DAY
     Route: 048
  2. ARTANE [Concomitant]
     Active Substance: TRIHEXYPHENIDYL HYDROCHLORIDE
     Dosage: 2 TABLETS, 3X/DAY
     Route: 048
  3. KEPPRA [Concomitant]
     Active Substance: LEVETIRACETAM
     Dosage: 7.5 ML, 2X/DAY
     Route: 048
  4. PRILOSEC [Concomitant]
     Active Substance: OMEPRAZOLE MAGNESIUM
     Dosage: 1 CAPSULES, 1X/DAY
     Route: 048
  5. LIORESAL [Suspect]
     Active Substance: BACLOFEN
     Indication: MUSCLE SPASTICITY
     Dosage: 240 ?G, \DAY
     Route: 037
     Dates: start: 2009
  6. LIORESAL [Suspect]
     Active Substance: BACLOFEN
     Indication: CEREBRAL PALSY
     Dosage: 210 ?G, \DAY
     Route: 037
  7. ADVIL [Concomitant]
     Active Substance: IBUPROFEN
     Dosage: 400 MG, AS NEEDED
     Route: 048
  8. TYLENOL [Concomitant]
     Active Substance: ACETAMINOPHEN
     Dosage: 325 MG, AS NEEDED
     Route: 048
  9. DIVALPROEX [Concomitant]
     Active Substance: DIVALPROEX SODIUM
     Dosage: 250 MG, 1X/DAY
     Route: 048
  10. VALIUM [Concomitant]
     Active Substance: DIAZEPAM
     Dosage: 5 ML, AS NEEDED
     Route: 048
  11. SINGULAIR [Concomitant]
     Active Substance: MONTELUKAST SODIUM
     Dosage: 5 MG, 1X/DAY
     Route: 048
  12. PROVENTIL HFA [Concomitant]
     Active Substance: ALBUTEROL SULFATE
     Dosage: 2 PUFFS, EVERY 4 HOURS AS NEEDED
     Route: 055
  13. CLARITIN [Concomitant]
     Active Substance: LORATADINE
     Dosage: 10 MG, 1X/DAY
     Route: 048
  14. QVAR [Concomitant]
     Active Substance: BECLOMETHASONE DIPROPIONATE
     Dosage: 2 PUFFS, 2X/DAY
     Route: 055
  15. CUVPOSA [Concomitant]
     Active Substance: GLYCOPYRROLATE
     Dosage: 10 ML, 3X/DAY
     Route: 048
  16. MIRALAX [Concomitant]
     Active Substance: POLYETHYLENE GLYCOL 3350
     Dosage: 17 G, 2X/DAY
     Route: 048
  17. DIVALPROEX [Concomitant]
     Active Substance: DIVALPROEX SODIUM
     Dosage: 375 MG, 1X/DAY
  18. MELATONIN [Concomitant]
     Active Substance: MELATONIN
     Dosage: 1 TABLETS, 1X/DAY
     Route: 048
  19. PERIACTIN [Concomitant]
     Active Substance: CYPROHEPTADINE HYDROCHLORIDE
  20. LIORESAL [Suspect]
     Active Substance: BACLOFEN
     Dosage: 100 ?G, \DAY
     Route: 037

REACTIONS (21)
  - Scleral disorder [Unknown]
  - Scoliosis [Unknown]
  - Discomfort [Recovered/Resolved]
  - Complication associated with device [Recovered/Resolved]
  - Dysarthria [Recovered/Resolved]
  - Device infusion issue [Recovered/Resolved]
  - Salivary hypersecretion [Unknown]
  - Drug withdrawal syndrome [Recovered/Resolved]
  - Pain in extremity [Recovered/Resolved]
  - Cognitive disorder [Recovered/Resolved]
  - Urinary incontinence [Recovered/Resolved]
  - Kyphosis [Unknown]
  - Asthma [Unknown]
  - Constipation [Recovered/Resolved]
  - Activities of daily living impaired [Unknown]
  - Medical device site infection [Recovered/Resolved]
  - Lethargy [Recovered/Resolved]
  - Strabismus [Unknown]
  - Somnolence [Recovered/Resolved]
  - Dystonia [Unknown]
  - Sedation [Recovered/Resolved]

NARRATIVE: CASE EVENT DATE: 20110725
